FAERS Safety Report 18876248 (Version 1)
Quarter: 2021Q1

REPORT INFORMATION
  Report Type: Spontaneous
  Country: DE (occurrence: DE)
  Receive Date: 20210211
  Receipt Date: 20210211
  Transmission Date: 20210420
  Serious: Yes (Other)
  Sender: FDA-Public Use
  Company Number: DE-AUROBINDO-AUR-APL-2021-005491

PATIENT
  Age: 1 Day
  Sex: Female
  Weight: 3.51 kg

DRUGS (9)
  1. L?THYROXIN [Concomitant]
     Active Substance: LEVOTHYROXINE SODIUM
     Indication: HYPOTHYROIDISM
     Dosage: 50 MICROGRAM/DOSIS
     Route: 064
     Dates: start: 20181209
  2. LAMOTRIGINE. [Suspect]
     Active Substance: LAMOTRIGINE
     Indication: EPILEPSY
     Dosage: 2000 MG/D (BIS 450)
     Route: 064
     Dates: start: 20181209, end: 20190826
  3. FRISIUM [Suspect]
     Active Substance: CLOBAZAM
     Indication: EPILEPSY
     Dosage: 20 [MG/D (BIS 5) ]/ FIRST 5 MG/..
     Route: 064
     Dates: start: 20190801
  4. IBUPROFEN. [Concomitant]
     Active Substance: IBUPROFEN
     Indication: RHEUMATOID ARTHRITIS
     Dosage: 10 DOSAGE FORM, IN TOTAL..
     Route: 064
  5. PREDNISOLON [Concomitant]
     Active Substance: PREDNISOLONE
     Indication: RHEUMATOID ARTHRITIS
     Dosage: 10 [MG/D (BIS 5 MG/D) ]
     Route: 064
     Dates: start: 20181209
  6. AGYRAX [Concomitant]
     Active Substance: MECLIZINE HYDROCHLORIDE
     Indication: MORNING SICKNESS
     Dosage: 100 MILLIGRAM, ONCE A DAY
     Route: 064
  7. CIMZIA [Concomitant]
     Active Substance: CERTOLIZUMAB PEGOL
     Indication: RHEUMATOID ARTHRITIS
     Dosage: 200 MILLIGRAM, 2 WEEK
     Route: 064
     Dates: start: 20181209, end: 20190826
  8. PARACETAMOL [Concomitant]
     Active Substance: ACETAMINOPHEN
     Indication: RHEUMATOID ARTHRITIS
     Dosage: 500 MILLIGRAM, AS NECESSARY ([MG/D (BEI BEDARF) ]/ IN TOTAL..)
     Route: 064
  9. PANTOPRAZOL [Concomitant]
     Active Substance: PANTOPRAZOLE SODIUM
     Indication: GASTRITIS PROPHYLAXIS
     Dosage: 40 MILLIGRAM, AS NECESSARY [MG/D (BEI BEDARF) ]
     Route: 064

REACTIONS (3)
  - Myoclonus [Unknown]
  - Foetal exposure during pregnancy [Unknown]
  - Floppy infant [Recovered/Resolved]

NARRATIVE: CASE EVENT DATE: 20190826
